FAERS Safety Report 23370434 (Version 1)
Quarter: 2024Q1

REPORT INFORMATION
  Report Type: Spontaneous
  Country: US (occurrence: US)
  Receive Date: 20240105
  Receipt Date: 20240105
  Transmission Date: 20240410
  Serious: No
  Sender: FDA-Public Use
  Company Number: US-SA-SAC20231228000724

PATIENT
  Sex: Female

DRUGS (11)
  1. DUPIXENT [Suspect]
     Active Substance: DUPILUMAB
     Indication: Dermatitis atopic
     Dosage: 300 MG, QOW
     Route: 058
  2. ETONOGESTREL AND ETHINYL ESTRADIOL [Concomitant]
     Active Substance: ETHINYL ESTRADIOL\ETONOGESTREL
  3. GABAPENTIN [Concomitant]
     Active Substance: GABAPENTIN
  4. METRONIDAZOLE [Concomitant]
     Active Substance: METRONIDAZOLE
  5. QUETIAPINE [Concomitant]
     Active Substance: QUETIAPINE
  6. ROPINIROLE [Concomitant]
     Active Substance: ROPINIROLE
  7. MONTELUKAST [Concomitant]
     Active Substance: MONTELUKAST SODIUM
  8. OMEPRAZOLE [Concomitant]
     Active Substance: OMEPRAZOLE
  9. METHOCARBAMOL [Concomitant]
     Active Substance: METHOCARBAMOL
  10. CLONAZEPAM [Concomitant]
     Active Substance: CLONAZEPAM
     Indication: Bipolar disorder
  11. MELOXICAM [Concomitant]
     Active Substance: MELOXICAM

REACTIONS (3)
  - Eczema [Unknown]
  - Pruritus [Unknown]
  - Swelling [Unknown]
